FAERS Safety Report 10064326 (Version 1)
Quarter: 2014Q2

REPORT INFORMATION
  Report Type: Spontaneous
  Country: FR (occurrence: None)
  Receive Date: 20140404
  Receipt Date: 20140404
  Transmission Date: 20141212
  Serious: Yes (Congenital Anomaly)
  Sender: FDA-Public Use
  Company Number: B0979793B

PATIENT
  Age: 0 Day
  Sex: Female

DRUGS (1)
  1. PAROXETINE HYDROCHLORIDE [Suspect]
     Indication: DEPRESSION
     Dosage: ALTERNATE DAYS
     Route: 064
     Dates: start: 201210, end: 20130626

REACTIONS (5)
  - Cleft palate [None]
  - Twin pregnancy [None]
  - Uvula aplasia [None]
  - Maternal drugs affecting foetus [None]
  - Premature baby [None]
